FAERS Safety Report 7867969-4 (Version None)
Quarter: 2011Q4

REPORT INFORMATION
  Report Type: 
  Country: None (occurrence: None)
  Receive Date: 20111028
  Receipt Date: 20111019
  Transmission Date: 20120403
  Serious: Yes (Other)
  Sender: FDA-Public Use
  Company Number: US-SANOFI-AVENTIS-2011SA067661

PATIENT
  Sex: Male

DRUGS (2)
  1. SOLOSTAR [Suspect]
  2. LANTUS [Suspect]

REACTIONS (2)
  - PRODUCT QUALITY ISSUE [None]
  - DEVICE MALFUNCTION [None]
